FAERS Safety Report 12491783 (Version 4)
Quarter: 2020Q1

REPORT INFORMATION
  Report Type: Report from Study
  Country: GB (occurrence: GB)
  Receive Date: 20160623
  Receipt Date: 20200327
  Transmission Date: 20200409
  Serious: Yes (Life-Threatening, Hospitalization, Disabling)
  Sender: FDA-Public Use
  Company Number: PHFR2016GB005138

PATIENT
  Age: 52 Year
  Sex: Female

DRUGS (3)
  1. SERTRALINE [Concomitant]
     Active Substance: SERTRALINE HYDROCHLORIDE
     Indication: DEPRESSION
     Dosage: UNK
     Route: 065
     Dates: start: 2014
  2. GILENYA [Suspect]
     Active Substance: FINGOLIMOD HYDROCHLORIDE
     Indication: MULTIPLE SCLEROSIS
     Dosage: UNK UNK, QD
     Route: 048
     Dates: start: 20140708, end: 20151212
  3. PREGABALIN. [Concomitant]
     Active Substance: PREGABALIN
     Indication: PRODUCT USED FOR UNKNOWN INDICATION
     Route: 065

REACTIONS (28)
  - Confusional state [Unknown]
  - Blindness unilateral [Unknown]
  - Mobility decreased [Recovered/Resolved]
  - Facial paralysis [Unknown]
  - Hemiparesis [Unknown]
  - Sepsis [Recovered/Resolved]
  - Eosinophil count decreased [Unknown]
  - Platelet count increased [Unknown]
  - Cerebral atrophy [Unknown]
  - Neutrophil count increased [Unknown]
  - Lymphocyte count decreased [Unknown]
  - Multiple sclerosis relapse [Recovered/Resolved]
  - Hypoaesthesia [Unknown]
  - Blood creatinine decreased [Unknown]
  - C-reactive protein increased [Unknown]
  - Activated partial thromboplastin time shortened [Unknown]
  - Muscle spasticity [Unknown]
  - Language disorder [Unknown]
  - White blood cell count increased [Unknown]
  - Epstein-Barr virus test positive [Unknown]
  - Escherichia urinary tract infection [Unknown]
  - Amnesia [Unknown]
  - Dysphagia [Unknown]
  - Incontinence [Unknown]
  - Cerebellar atrophy [Unknown]
  - Blood urea increased [Unknown]
  - Paresis [Unknown]
  - Haematocrit decreased [Unknown]

NARRATIVE: CASE EVENT DATE: 201602
